FAERS Safety Report 10064197 (Version 2)
Quarter: 2014Q2

REPORT INFORMATION
  Report Type: Spontaneous
  Country: US (occurrence: None)
  Receive Date: 20140122
  Receipt Date: 20140626
  Transmission Date: 20141212
  Serious: Yes (Hospitalization)
  Sender: FDA-Public Use
  Company Number: US-000910

PATIENT
  Age: 59 Year
  Sex: Female

DRUGS (7)
  1. GATTEX [Suspect]
     Indication: SHORT-BOWEL SYNDROME
     Dosage: 0.18 ML QD, STREN/VOLUM: 0.18 ML/FREQ: ONCE A DAY SUBCUTANEOUS
     Route: 058
     Dates: start: 20130924, end: 20140612
  2. PEPTAMEN [Concomitant]
  3. IV SOLUTIONS [Concomitant]
  4. MAGNESIUM [Concomitant]
  5. SOLUTIONS FOR PARENTERAL NUTRITION [Concomitant]
  6. HYDROCODONE [Concomitant]
  7. SANDOSTATIN [Concomitant]

REACTIONS (3)
  - Dehydration [None]
  - Electrolyte imbalance [None]
  - Blood magnesium decreased [None]
